APPROVED DRUG PRODUCT: NEOSTIGMINE METHYLSULFATE
Active Ingredient: NEOSTIGMINE METHYLSULFATE
Strength: 3MG/3ML (1MG/ML)
Dosage Form/Route: SOLUTION;INTRAVENOUS
Application: N203629 | Product #003 | TE Code: AP
Applicant: FRESENIUS KABI USA LLC
Approved: Sep 18, 2018 | RLD: Yes | RS: Yes | Type: RX